FAERS Safety Report 6114681-8 (Version None)
Quarter: 2009Q1

REPORT INFORMATION
  Report Type: 
  Country: None (occurrence: None)
  Receive Date: 20090313
  Receipt Date: 20090302
  Transmission Date: 20090719
  Serious: Yes (Hospitalization)
  Sender: FDA-Public Use
  Company Number: US-SOLVAY-00209001210

PATIENT
  Age: 12 Year
  Sex: Male
  Weight: 72.727 kg

DRUGS (5)
  1. CREON [Suspect]
     Indication: CYSTIC FIBROSIS
     Dosage: DAILY DOSE: 4 DOSAGE FORM
     Route: 048
     Dates: end: 20070101
  2. CREON [Suspect]
     Dosage: DAILY DOSE: 5 DOSAGE FORM, 3 CAPSULES WITH MEALS AND 2 CAPSULES WITH EVERY SNACK DAILY
     Route: 048
     Dates: start: 20070101
  3. MIRALAX [Concomitant]
     Indication: ENEMA ADMINISTRATION
     Dosage: DAILY DOSE:  UNKNOWN; FREQUENCY: THREE TIMES A DAY
     Route: 048
     Dates: start: 20080901
  4. VITAMINS [Concomitant]
     Indication: CYSTIC FIBROSIS
     Dosage: DAILY DOSE:  UNKNOWN
     Route: 048
  5. SEVERAL MEDICINES FOR HIS LUNGS [Concomitant]
     Indication: CYSTIC FIBROSIS
     Dosage: DAILY DOSE:  UNKNOWN
     Route: 065

REACTIONS (7)
  - ABDOMINAL PAIN [None]
  - CONSTIPATION [None]
  - DIARRHOEA [None]
  - INTESTINAL FUNCTIONAL DISORDER [None]
  - NAUSEA [None]
  - VOMITING [None]
  - WEIGHT INCREASED [None]
